FAERS Safety Report 5398379-X (Version None)
Quarter: 2007Q3

REPORT INFORMATION
  Report Type: 
  Country: None (occurrence: None)
  Receive Date: 20070726
  Receipt Date: 20070502
  Transmission Date: 20080115
  Serious: No
  Sender: FDA-Public Use
  Company Number: US-AMGEN-KDL223145

PATIENT
  Age: 64 Year
  Sex: Female

DRUGS (2)
  1. PROCRIT [Suspect]
     Indication: ANAEMIA OF MALIGNANT DISEASE
  2. HYDREA [Concomitant]

REACTIONS (2)
  - DIZZINESS [None]
  - MUSCULAR WEAKNESS [None]
